FAERS Safety Report 4423907-8 (Version None)
Quarter: 2004Q3

REPORT INFORMATION
  Report Type: 
  Country: None (occurrence: None)
  Receive Date: 20040806
  Receipt Date: 20040716
  Transmission Date: 20050211
  Serious: Yes (Hospitalization)
  Sender: FDA-Public Use
  Company Number: EWC040739984

PATIENT
  Age: 49 Year
  Sex: Female

DRUGS (4)
  1. VANCOMYCIN [Suspect]
     Indication: SPONDYLITIS
  2. VANCOMYCIN [Suspect]
     Indication: STAPHYLOCOCCAL INFECTION
  3. RIFAMPICIN [Concomitant]
  4. LEVOFLOXACIN [Concomitant]

REACTIONS (13)
  - ALANINE AMINOTRANSFERASE INCREASED [None]
  - ASPARTATE AMINOTRANSFERASE INCREASED [None]
  - BLOOD ALKALINE PHOSPHATASE INCREASED [None]
  - C-REACTIVE PROTEIN INCREASED [None]
  - EOSINOPHIL PERCENTAGE INCREASED [None]
  - EXANTHEM [None]
  - HYPERSENSITIVITY [None]
  - LYMPHADENOPATHY [None]
  - OLIGURIA [None]
  - PYREXIA [None]
  - RASH MACULO-PAPULAR [None]
  - SHOCK [None]
  - URTICARIA [None]
